FAERS Safety Report 22207457 (Version 1)
Quarter: 2023Q2

REPORT INFORMATION
  Report Type: Spontaneous
  Country: CN (occurrence: CN)
  Receive Date: 20230413
  Receipt Date: 20230413
  Transmission Date: 20230722
  Serious: Yes (Hospitalization)
  Sender: FDA-Public Use
  Company Number: CN-PFIZER INC-PV202300065763

PATIENT
  Age: 54 Year
  Sex: Female
  Weight: 65 kg

DRUGS (2)
  1. INLYTA [Suspect]
     Active Substance: AXITINIB
     Indication: Renal neoplasm
     Dosage: 5 MG, 2X/DAY
     Route: 048
     Dates: start: 20230319, end: 20230320
  2. TORIPALIMAB [Suspect]
     Active Substance: TORIPALIMAB
     Indication: Renal neoplasm
     Dosage: 200 MG, 1X/DAY
     Route: 041
     Dates: start: 20230319, end: 20230319

REACTIONS (5)
  - Hepatic failure [Recovering/Resolving]
  - Drug-induced liver injury [Recovering/Resolving]
  - Asthenia [Recovering/Resolving]
  - Discomfort [Recovering/Resolving]
  - Nausea [Recovering/Resolving]

NARRATIVE: CASE EVENT DATE: 20230327
